FAERS Safety Report 9336452 (Version 2)
Quarter: 2013Q2

REPORT INFORMATION
  Report Type: Spontaneous
  Country: JP (occurrence: JP)
  Receive Date: 20130607
  Receipt Date: 20130611
  Transmission Date: 20140414
  Serious: Yes (Other)
  Sender: FDA-Public Use
  Company Number: JP-BAYER-2013-067225

PATIENT
  Age: 31 Year
  Sex: Female

DRUGS (3)
  1. ADALAT L [Suspect]
     Indication: GESTATIONAL HYPERTENSION
     Dosage: UNK
     Route: 048
     Dates: start: 2009
  2. HYDRALAZINE HYDROCHLORIDE [Concomitant]
     Indication: GESTATIONAL HYPERTENSION
     Dosage: UNK
     Dates: start: 2009
  3. METHYLDOPA [Concomitant]
     Indication: GESTATIONAL HYPERTENSION
     Dosage: UNK
     Route: 048
     Dates: start: 2009

REACTIONS (4)
  - Caesarean section [None]
  - Primary hyperaldosteronism [None]
  - Adrenal neoplasm [None]
  - Exposure during pregnancy [None]
